FAERS Safety Report 9192761 (Version 1)
Quarter: 2013Q1

REPORT INFORMATION
  Report Type: Spontaneous
  Country: US (occurrence: None)
  Receive Date: 20130325
  Receipt Date: 20130325
  Transmission Date: 20140127
  Serious: Yes (Hospitalization)
  Sender: FDA-Public Use
  Company Number: None

PATIENT
  Sex: Male
  Weight: 42 kg

DRUGS (6)
  1. CYTARABINE [Suspect]
  2. DAUNORUBICIN [Suspect]
  3. METHOTREXATE [Suspect]
  4. ONCASPAR [Suspect]
  5. PREDNISONE [Suspect]
  6. VINCRISTINE SULFATE [Suspect]

REACTIONS (3)
  - Pyrexia [None]
  - Pancytopenia [None]
  - Intestinal perforation [None]
